FAERS Safety Report 6634197-X (Version None)
Quarter: 2010Q1

REPORT INFORMATION
  Report Type: 
  Country: None (occurrence: None)
  Receive Date: 20100311
  Receipt Date: 20100311
  Transmission Date: 20100710
  Serious: Yes (Hospitalization)
  Sender: FDA-Public Use
  Company Number: None

PATIENT
  Sex: Male

DRUGS (1)
  1. LIPITOR [Suspect]
     Indication: BLOOD CHOLESTEROL
     Dosage: 20MG ONCE A DAY PO
     Route: 048
     Dates: start: 20050728, end: 20080901

REACTIONS (3)
  - ARTHROPATHY [None]
  - MUSCLE RUPTURE [None]
  - MUSCULOSKELETAL PAIN [None]
